FAERS Safety Report 20468121 (Version 1)
Quarter: 2022Q1

REPORT INFORMATION
  Report Type: Spontaneous
  Country: KR (occurrence: KR)
  Receive Date: 20220214
  Receipt Date: 20220214
  Transmission Date: 20220423
  Serious: Yes (Death, Hospitalization)
  Sender: FDA-Public Use
  Company Number: KR-STRIDES ARCOLAB LIMITED-2022SP001192

PATIENT
  Sex: Female

DRUGS (17)
  1. PREDNISOLONE [Suspect]
     Active Substance: PREDNISOLONE
     Indication: Mevalonic aciduria
     Dosage: UNK
     Route: 048
  2. ETOPOSIDE [Suspect]
     Active Substance: ETOPOSIDE
     Indication: Acute myeloid leukaemia
     Dosage: MODIFIED A-TRIPLE-V REGIMEN
     Route: 065
  3. ETOPOSIDE [Suspect]
     Active Substance: ETOPOSIDE
     Dosage: MRC AML12 PROTOCOL
     Route: 065
  4. CYCLOSPORINE [Suspect]
     Active Substance: CYCLOSPORINE
     Indication: Prophylaxis against graft versus host disease
     Dosage: UNK
     Route: 065
  5. MYCOPHENOLATE MOFETIL [Suspect]
     Active Substance: MYCOPHENOLATE MOFETIL
     Indication: Prophylaxis against graft versus host disease
     Dosage: UNK
     Route: 065
  6. CYTARABINE [Suspect]
     Active Substance: CYTARABINE
     Indication: Acute myeloid leukaemia
     Dosage: MODIFIED A-TRIPLE-V REGIMEN
     Route: 065
  7. CYTARABINE [Suspect]
     Active Substance: CYTARABINE
     Dosage: MRC AML12 PROTOCOL
     Route: 065
  8. VINCRISTINE [Suspect]
     Active Substance: VINCRISTINE
     Indication: Acute myeloid leukaemia
     Dosage: MODIFIED A-TRIPLE-V REGIMEN
     Route: 065
  9. METHYLPREDNISOLONE [Concomitant]
     Active Substance: METHYLPREDNISOLONE
     Indication: Mevalonic aciduria
     Dosage: UNK
     Route: 065
  10. METHYLPREDNISOLONE [Concomitant]
     Active Substance: METHYLPREDNISOLONE
     Dosage: UNK
     Route: 042
  11. BUSULFAN [Concomitant]
     Active Substance: BUSULFAN
     Indication: Bone marrow conditioning regimen
     Dosage: UNK, CONDITIONING TREATMENT
     Route: 065
  12. FLUDARABINE [Concomitant]
     Active Substance: FLUDARABINE PHOSPHATE
     Indication: Bone marrow conditioning regimen
     Dosage: UNK, CONDITIONING TREATMENT
     Route: 065
  13. FLUDARABINE [Concomitant]
     Active Substance: FLUDARABINE PHOSPHATE
     Dosage: UNK, CONDITIONING TREATMENT
     Route: 065
  14. CYCLOPHOSPHAMIDE [Concomitant]
     Active Substance: CYCLOPHOSPHAMIDE
     Indication: Bone marrow conditioning regimen
     Dosage: UNK, CONDITIONING TREATMENT
     Route: 065
  15. CYCLOPHOSPHAMIDE [Concomitant]
     Active Substance: CYCLOPHOSPHAMIDE
     Dosage: UNK, CONDITIONING TREATMENT
     Route: 065
  16. LAPINE T-LYMPHOCYTE IMMUNE GLOBULIN [Concomitant]
     Active Substance: LAPINE T-LYMPHOCYTE IMMUNE GLOBULIN
     Indication: Bone marrow conditioning regimen
     Dosage: UNK, CONDITIONING TREATMENT
     Route: 065
  17. LAPINE T-LYMPHOCYTE IMMUNE GLOBULIN [Concomitant]
     Active Substance: LAPINE T-LYMPHOCYTE IMMUNE GLOBULIN
     Dosage: UNK, CONDITIONING TREATMENT
     Route: 065

REACTIONS (3)
  - Acinetobacter bacteraemia [Fatal]
  - Drug ineffective [Unknown]
  - Off label use [Unknown]
